FAERS Safety Report 14567234 (Version 3)
Quarter: 2018Q2

REPORT INFORMATION
  Report Type: Spontaneous
  Country: ES (occurrence: ES)
  Receive Date: 20180223
  Receipt Date: 20180412
  Transmission Date: 20180711
  Serious: Yes (Hospitalization, Other)
  Sender: FDA-Public Use
  Company Number: ES-AUROBINDO-AUR-APL-2018-004093

PATIENT
  Age: 73 Year
  Sex: Female

DRUGS (42)
  1. VANCOMYCIN [Suspect]
     Active Substance: VANCOMYCIN
     Dosage: 1 GRAM
     Route: 042
  2. LEVOBUPIVACAINE [Concomitant]
     Active Substance: LEVOBUPIVACAINE
     Indication: PRODUCT USED FOR UNKNOWN INDICATION
     Dosage: 125 MG, UNK
     Route: 008
  3. LEVOBUPIVACAINE [Concomitant]
     Active Substance: LEVOBUPIVACAINE
     Route: 008
  4. LACTULOSE. [Concomitant]
     Active Substance: LACTULOSE
     Indication: PRODUCT USED FOR UNKNOWN INDICATION
     Dosage: 10 G, DAILY
     Route: 048
  5. RIFAMPICIN [Suspect]
     Active Substance: RIFAMPIN
     Route: 042
  6. PARACETAMOL [Concomitant]
     Active Substance: ACETAMINOPHEN
     Indication: PRODUCT USED FOR UNKNOWN INDICATION
     Dosage: 1 G, 8 HOURS
     Route: 042
  7. PARACETAMOL [Concomitant]
     Active Substance: ACETAMINOPHEN
     Route: 042
  8. ENOXAPARIN [Concomitant]
     Active Substance: ENOXAPARIN
     Route: 058
  9. SIMVASTATIN. [Concomitant]
     Active Substance: SIMVASTATIN
     Indication: HYPERCHOLESTEROLAEMIA
     Dosage: 20 MILLIGRAM
  10. SIMVASTATIN. [Concomitant]
     Active Substance: SIMVASTATIN
  11. HYDROCHLOROTHIAZIDE W/OLMESARTAN MEDOXOMIL [Concomitant]
     Active Substance: HYDROCHLOROTHIAZIDE\OLMESARTAN MEDOXOMIL
     Indication: HYPERTENSION
     Dosage: 1 DOSAGE FORM
  12. RIFAMPICIN [Suspect]
     Active Substance: RIFAMPIN
     Indication: ANTIBIOTIC THERAPY
     Dosage: 600 MG, DAILY
     Route: 042
  13. PARACETAMOL [Concomitant]
     Active Substance: ACETAMINOPHEN
     Route: 042
  14. PARACETAMOL [Concomitant]
     Active Substance: ACETAMINOPHEN
     Route: 042
  15. BISOPROLOL [Concomitant]
     Active Substance: BISOPROLOL
  16. IRON [Concomitant]
     Active Substance: IRON
     Indication: PRODUCT USED FOR UNKNOWN INDICATION
     Dosage: 100 MG, EVERY 48 HOURS
     Route: 042
  17. IRON [Concomitant]
     Active Substance: IRON
     Route: 042
  18. VANCOMYCIN [Suspect]
     Active Substance: VANCOMYCIN
     Indication: ANTIBIOTIC THERAPY
     Dosage: 1 G, DAILY
     Route: 042
  19. OMEPRAZOLE. [Concomitant]
     Active Substance: OMEPRAZOLE
     Route: 042
  20. LEVOBUPIVACAINE [Concomitant]
     Active Substance: LEVOBUPIVACAINE
     Route: 008
  21. FOLIC ACID. [Concomitant]
     Active Substance: FOLIC ACID
     Route: 048
  22. BISOPROLOL [Concomitant]
     Active Substance: BISOPROLOL
     Indication: HYPERTENSION
  23. RIFAMPICIN [Suspect]
     Active Substance: RIFAMPIN
     Route: 042
  24. FOLIC ACID. [Concomitant]
     Active Substance: FOLIC ACID
     Indication: PRODUCT USED FOR UNKNOWN INDICATION
     Dosage: 10 MG, DAILY
     Route: 048
  25. FENTANYL. [Concomitant]
     Active Substance: FENTANYL
     Indication: PRODUCT USED FOR UNKNOWN INDICATION
     Dosage: 0.15 MG, DAILY
     Route: 008
  26. RIFAMPICIN [Suspect]
     Active Substance: RIFAMPIN
     Route: 042
  27. VANCOMYCIN [Suspect]
     Active Substance: VANCOMYCIN
     Dosage: 1 GRAM
     Route: 042
  28. PARACETAMOL [Concomitant]
     Active Substance: ACETAMINOPHEN
     Route: 042
  29. OMEPRAZOLE. [Concomitant]
     Active Substance: OMEPRAZOLE
     Indication: PRODUCT USED FOR UNKNOWN INDICATION
     Dosage: 40 MG, DAILY
     Route: 042
  30. OMEPRAZOLE. [Concomitant]
     Active Substance: OMEPRAZOLE
     Route: 042
  31. FENTANYL. [Concomitant]
     Active Substance: FENTANYL
     Route: 008
  32. LACTULOSE. [Concomitant]
     Active Substance: LACTULOSE
     Route: 048
  33. BISOPROLOL [Concomitant]
     Active Substance: BISOPROLOL
     Indication: PRODUCT USED FOR UNKNOWN INDICATION
     Dosage: 2.5 MG, DAILY
     Route: 048
  34. LEVOFLOXACIN. [Suspect]
     Active Substance: LEVOFLOXACIN
     Indication: STAPHYLOCOCCAL INFECTION
     Dosage: 500 MILLIGRAM
     Route: 048
  35. ENOXAPARIN [Concomitant]
     Active Substance: ENOXAPARIN
     Indication: PRODUCT USED FOR UNKNOWN INDICATION
     Dosage: 40 MG, DAILY
     Route: 058
  36. FOLIC ACID. [Concomitant]
     Active Substance: FOLIC ACID
     Route: 048
  37. SIMVASTATIN. [Concomitant]
     Active Substance: SIMVASTATIN
  38. RIFAMPICIN [Suspect]
     Active Substance: RIFAMPIN
     Indication: STAPHYLOCOCCAL INFECTION
     Route: 042
  39. ENOXAPARIN [Concomitant]
     Active Substance: ENOXAPARIN
     Route: 058
  40. FENTANYL. [Concomitant]
     Active Substance: FENTANYL
     Route: 008
  41. LACTULOSE. [Concomitant]
     Active Substance: LACTULOSE
     Route: 048
  42. IRON [Concomitant]
     Active Substance: IRON
     Route: 042

REACTIONS (2)
  - Toxicity to various agents [Recovered/Resolved]
  - Pancytopenia [Recovered/Resolved]
